FAERS Safety Report 20338959 (Version 1)
Quarter: 2022Q1

REPORT INFORMATION
  Report Type: Spontaneous
  Country: JP (occurrence: JP)
  Receive Date: 20220116
  Receipt Date: 20220116
  Transmission Date: 20220423
  Serious: Yes (Death)
  Sender: FDA-Public Use
  Company Number: JP-NBI-J202200747BIPI

PATIENT
  Age: 71 Year
  Sex: Male
  Weight: 37.8 kg

DRUGS (1)
  1. OFEV [Suspect]
     Active Substance: NINTEDANIB
     Indication: Idiopathic pulmonary fibrosis
     Route: 065
     Dates: start: 20160222, end: 20160308

REACTIONS (1)
  - Interstitial lung disease [Fatal]
